FAERS Safety Report 6978236-5 (Version None)
Quarter: 2010Q3

REPORT INFORMATION
  Report Type: 
  Country: None (occurrence: None)
  Receive Date: 20100913
  Receipt Date: 20100830
  Transmission Date: 20110219
  Serious: Yes (Other)
  Sender: FDA-Public Use
  Company Number: US-ELI_LILLY_AND_COMPANY-US201009001038

PATIENT
  Sex: Female

DRUGS (1)
  1. FORTEO [Suspect]
     Dosage: 20 UG, DAILY (1/D)
     Route: 058
     Dates: start: 20090623, end: 20100805

REACTIONS (5)
  - FALL [None]
  - HEAD INJURY [None]
  - PATELLA FRACTURE [None]
  - RIB FRACTURE [None]
  - TRANSIENT ISCHAEMIC ATTACK [None]
